FAERS Safety Report 19684777 (Version 1)
Quarter: 2021Q3

REPORT INFORMATION
  Report Type: Spontaneous
  Country: CA (occurrence: CA)
  Receive Date: 20210811
  Receipt Date: 20210811
  Transmission Date: 20211014
  Serious: Yes (Hospitalization)
  Sender: FDA-Public Use
  Company Number: CA-TEVA-2021-CA-1939542

PATIENT
  Age: 71 Year
  Sex: Male

DRUGS (1)
  1. METOPROLOL. [Suspect]
     Active Substance: METOPROLOL
     Indication: ANGINA PECTORIS
     Dosage: 25 MILLIGRAM DAILY;
     Route: 048

REACTIONS (3)
  - Bradycardia [Unknown]
  - Orthostatic hypotension [Unknown]
  - Dizziness [Unknown]
